FAERS Safety Report 16707575 (Version 3)
Quarter: 2020Q1

REPORT INFORMATION
  Report Type: Spontaneous
  Country: US (occurrence: US)
  Receive Date: 20190815
  Receipt Date: 20200212
  Transmission Date: 20200409
  Serious: No
  Sender: FDA-Public Use
  Company Number: US-RIGEL PHARMACEUTICALS, INC.-2019FOS000235

PATIENT
  Sex: Male
  Weight: 102.04 kg

DRUGS (2)
  1. TAVALISSE [Suspect]
     Active Substance: FOSTAMATINIB
     Indication: IMMUNE THROMBOCYTOPENIC PURPURA
     Dosage: 100 MG, BID
     Route: 048
     Dates: start: 20190502
  2. TAVALISSE [Suspect]
     Active Substance: FOSTAMATINIB
     Dosage: 100 MG, BID
     Route: 048
     Dates: start: 20190502

REACTIONS (9)
  - Limb injury [Unknown]
  - Product dose omission [Unknown]
  - Impaired healing [Unknown]
  - Contusion [Unknown]
  - Blood viscosity abnormal [Unknown]
  - Adverse event [Unknown]
  - Blood pressure increased [Not Recovered/Not Resolved]
  - Nausea [Unknown]
  - Peripheral swelling [Unknown]

NARRATIVE: CASE EVENT DATE: 2019
